FAERS Safety Report 7623146-3 (Version None)
Quarter: 2011Q3

REPORT INFORMATION
  Report Type: 
  Country: None (occurrence: None)
  Receive Date: 20110720
  Receipt Date: 20110708
  Transmission Date: 20111222
  Serious: Yes (Other)
  Sender: FDA-Public Use
  Company Number: PHHY2011ES60994

PATIENT
  Age: 52 Year
  Sex: Female

DRUGS (1)
  1. GLEEVEC [Suspect]
     Indication: CHRONIC MYELOID LEUKAEMIA
     Dosage: 400 MG, DAILY
     Route: 048
     Dates: start: 20100801

REACTIONS (4)
  - FLATULENCE [None]
  - NEOPLASM MALIGNANT [None]
  - COLON CANCER METASTATIC [None]
  - MUCOUS STOOLS [None]
